FAERS Safety Report 6028217-3 (Version None)
Quarter: 2008Q4

REPORT INFORMATION
  Report Type: 
  Country: None (occurrence: None)
  Receive Date: 20081231
  Receipt Date: 20081231
  Transmission Date: 20090506
  Serious: Yes (Hospitalization)
  Sender: FDA-Public Use
  Company Number: None

PATIENT
  Age: 75 Year
  Sex: Male

DRUGS (2)
  1. SULFAMETHOXAZOLE AND TRIMETHOPRIM [Suspect]
     Indication: CELLULITIS
     Dosage: 1 TAB BID PO
     Route: 048
     Dates: start: 20081121, end: 20081126
  2. IODIXANOL [Suspect]
     Dosage: 120 ML ONCE IV
     Route: 042
     Dates: start: 20081126, end: 20081126

REACTIONS (1)
  - LEUKOCYTOCLASTIC VASCULITIS [None]
